FAERS Safety Report 19386092 (Version 1)
Quarter: 2021Q2

REPORT INFORMATION
  Report Type: Spontaneous
  Country: ES (occurrence: ES)
  Receive Date: 20210608
  Receipt Date: 20210608
  Transmission Date: 20210717
  Serious: Yes (Hospitalization)
  Sender: FDA-Public Use
  Company Number: ES-TEVA-2021-ES-1919686

PATIENT
  Age: 59 Year
  Sex: Female
  Weight: 80 kg

DRUGS (5)
  1. LIDOCAINA [LIDOCAINE] [Suspect]
     Active Substance: LIDOCAINE
     Route: 065
     Dates: start: 20210516, end: 20210516
  2. IBUPROFENO (1769A) [Suspect]
     Active Substance: IBUPROFEN
     Route: 065
     Dates: start: 2021, end: 2021
  3. OMEPRAZOL (2141A) [Suspect]
     Active Substance: OMEPRAZOLE
     Route: 065
     Dates: start: 2021, end: 2021
  4. ENALAPRIL + HIDROCLOROTIAZIDA [Suspect]
     Active Substance: ENALAPRIL MALEATE\HYDROCHLOROTHIAZIDE
     Indication: HYPERTENSION
     Route: 048
     Dates: start: 2020, end: 2021
  5. MEPIVACAINA (1909A) [Suspect]
     Active Substance: MEPIVACAINE HYDROCHLORIDE
     Route: 065
     Dates: start: 20210516, end: 20210516

REACTIONS (2)
  - Rash [Recovering/Resolving]
  - Eosinophilia [Recovering/Resolving]

NARRATIVE: CASE EVENT DATE: 20210516
